FAERS Safety Report 11768338 (Version 1)
Quarter: 2015Q4

REPORT INFORMATION
  Report Type: Spontaneous
  Country: US (occurrence: US)
  Receive Date: 20151123
  Receipt Date: 20151123
  Transmission Date: 20160304
  Serious: No
  Sender: FDA-Public Use
  Company Number: US-TEVA-599031USA

PATIENT
  Sex: Female

DRUGS (5)
  1. PROMETHAZINE [Concomitant]
     Active Substance: PROMETHAZINE\PROMETHAZINE HYDROCHLORIDE
  2. TOPIRAMATE. [Concomitant]
     Active Substance: TOPIRAMATE
  3. CLOZAPINE. [Suspect]
     Active Substance: CLOZAPINE
     Indication: PRODUCT USED FOR UNKNOWN INDICATION
  4. SUMATRIPTAN. [Concomitant]
     Active Substance: SUMATRIPTAN
  5. OMEPRAZOLE. [Concomitant]
     Active Substance: OMEPRAZOLE

REACTIONS (1)
  - Laboratory test abnormal [Not Recovered/Not Resolved]
